FAERS Safety Report 13782920 (Version 14)
Quarter: 2019Q3

REPORT INFORMATION
  Report Type: Report from Study
  Country: TW (occurrence: TW)
  Receive Date: 20170724
  Receipt Date: 20190918
  Transmission Date: 20191004
  Serious: Yes (Death, Hospitalization)
  Sender: FDA-Public Use
  Company Number: TW-ROCHE-1956007

PATIENT
  Age: 58 Year
  Sex: Male
  Weight: 83.6 kg

DRUGS (41)
  1. SENNOSIDE A+B [Concomitant]
     Active Substance: SENNOSIDES A AND B
     Indication: CONSTIPATION
     Dosage: + CALCIUM
     Route: 048
     Dates: start: 20161213, end: 20170423
  2. FAMOTIDINE. [Concomitant]
     Active Substance: FAMOTIDINE
     Indication: PROPHYLAXIS
     Route: 048
     Dates: start: 20170109, end: 20170122
  3. SILYMARIN [SILYBUM MARIANUM] [Concomitant]
     Indication: ALANINE AMINOTRANSFERASE INCREASED
     Route: 048
     Dates: start: 20170327, end: 20170713
  4. SILYMARIN [SILYBUM MARIANUM] [Concomitant]
     Indication: ASPARTATE AMINOTRANSFERASE INCREASED
  5. PANTOPRAZOLE [Concomitant]
     Active Substance: PANTOPRAZOLE
     Indication: GASTRITIS HAEMORRHAGIC
     Route: 042
     Dates: start: 20170628, end: 20170701
  6. CHLORPROMAZINE. [Concomitant]
     Active Substance: CHLORPROMAZINE
     Indication: HICCUPS
     Route: 048
     Dates: start: 20161213, end: 20170120
  7. CONSLIFE [Concomitant]
     Indication: CONSTIPATION
     Route: 048
     Dates: start: 20170628, end: 20170713
  8. MONTELUKAST SODIUM. [Concomitant]
     Active Substance: MONTELUKAST SODIUM
     Indication: RHINORRHOEA
     Route: 048
     Dates: start: 20170413, end: 20170601
  9. PROCHLORPERAZINE. [Concomitant]
     Active Substance: PROCHLORPERAZINE
     Indication: PROPHYLAXIS
     Route: 048
     Dates: start: 20161213, end: 20161217
  10. CONCOR [Concomitant]
     Active Substance: BISOPROLOL FUMARATE
     Indication: HYPERTENSION
     Route: 048
     Dates: end: 20170713
  11. JANUVIA [Concomitant]
     Active Substance: SITAGLIPTIN PHOSPHATE
     Indication: TYPE 2 DIABETES MELLITUS
     Route: 048
     Dates: end: 20170628
  12. CRESTOR [Concomitant]
     Active Substance: ROSUVASTATIN CALCIUM
     Indication: HYPERLIPIDAEMIA
     Route: 048
     Dates: end: 20170628
  13. METOCLOPRAMIDE. [Concomitant]
     Active Substance: METOCLOPRAMIDE
     Indication: VOMITING
  14. THEOPHYLLINE [Concomitant]
     Active Substance: THEOPHYLLINE ANHYDROUS
     Indication: CREPITATIONS
     Route: 048
     Dates: start: 20170103, end: 20170710
  15. FEXOFENADINE [Concomitant]
     Active Substance: FEXOFENADINE HYDROCHLORIDE
     Indication: RHINORRHOEA
     Route: 048
     Dates: start: 20170302, end: 20170702
  16. GLUCOSE [Concomitant]
     Active Substance: DEXTROSE
     Dosage: 20 ML/AMP DOSE 4 AMPULE
     Route: 042
     Dates: start: 20170628, end: 20170628
  17. METOCLOPRAMIDE. [Concomitant]
     Active Substance: METOCLOPRAMIDE
     Indication: PROPHYLAXIS
     Dosage: 3.84 MG BASE/TAB
     Route: 048
     Dates: start: 20170103, end: 20170122
  18. ACETAMINOPHEN. [Concomitant]
     Active Substance: ACETAMINOPHEN
     Route: 048
     Dates: start: 20170103, end: 20170108
  19. NOVOMIX [Concomitant]
     Active Substance: INSULIN ASPART
     Indication: TYPE 2 DIABETES MELLITUS
     Dosage: 30 UNITS
     Route: 058
     Dates: end: 20170628
  20. CODEINE PHOSPHATE [Concomitant]
     Active Substance: CODEINE PHOSPHATE
     Indication: COUGH
     Dosage: 15 MG/ML/AMP
     Route: 042
     Dates: start: 20170714, end: 20170715
  21. SUCRALFATE. [Concomitant]
     Active Substance: SUCRALFATE
     Indication: GASTRITIS HAEMORRHAGIC
     Route: 048
     Dates: start: 20170701, end: 20170701
  22. SPIRONOLACTONE. [Concomitant]
     Active Substance: SPIRONOLACTONE
     Indication: OEDEMA
  23. DOMPERIDONE [Concomitant]
     Active Substance: DOMPERIDONE
     Indication: FLATULENCE
     Route: 048
     Dates: start: 20170612, end: 20170702
  24. FLUITRAN [Concomitant]
     Active Substance: TRICHLORMETHIAZIDE
     Indication: HYPERLIPIDAEMIA
     Route: 048
     Dates: end: 20170626
  25. DEXTROMETHORPHAN [Concomitant]
     Active Substance: DEXTROMETHORPHAN
     Indication: COUGH
     Route: 048
     Dates: start: 20170103, end: 20170122
  26. ACETAMINOPHEN. [Concomitant]
     Active Substance: ACETAMINOPHEN
     Indication: PYREXIA
     Route: 048
     Dates: start: 20170103, end: 20170122
  27. ACETAMINOPHEN. [Concomitant]
     Active Substance: ACETAMINOPHEN
     Route: 048
     Dates: start: 20161205, end: 20161207
  28. CODEINE PHOSPHATE [Concomitant]
     Active Substance: CODEINE PHOSPHATE
     Route: 048
     Dates: start: 20170406, end: 20170417
  29. LINAGLIPTIN [Concomitant]
     Active Substance: LINAGLIPTIN
     Indication: DIABETES MELLITUS
     Route: 048
     Dates: start: 20170628, end: 20170705
  30. ATEZOLIZUMAB. [Suspect]
     Active Substance: ATEZOLIZUMAB
     Indication: TRANSITIONAL CELL CARCINOMA
     Dosage: MOST RECENT DOSE OF BLINDED ATEZOLIZUMAB TO AE ONSET 12/JAN/2017 (1200 MG)
     Route: 041
     Dates: start: 20161213
  31. EXFORGE [Concomitant]
     Active Substance: AMLODIPINE BESYLATE\VALSARTAN
     Indication: HYPERTENSION
     Dosage: 5/80MG
     Route: 048
     Dates: end: 20170713
  32. ACETAMINOPHEN. [Concomitant]
     Active Substance: ACETAMINOPHEN
     Route: 048
     Dates: start: 20170628, end: 20170701
  33. ACETAMINOPHEN. [Concomitant]
     Active Substance: ACETAMINOPHEN
     Route: 048
     Dates: start: 20170109, end: 20170122
  34. CONSLIFE [Concomitant]
     Route: 048
     Dates: start: 20170424, end: 20170612
  35. RABEPRAZOLE [Concomitant]
     Active Substance: RABEPRAZOLE
     Indication: GASTRITIS HAEMORRHAGIC
     Route: 048
     Dates: start: 20170629, end: 20170711
  36. SPIRONOLACTONE. [Concomitant]
     Active Substance: SPIRONOLACTONE
     Indication: ASCITES
     Route: 048
     Dates: start: 20170701, end: 20170713
  37. GEMCITABINE. [Suspect]
     Active Substance: GEMCITABINE
     Indication: TRANSITIONAL CELL CARCINOMA
     Dosage: MOST RECENT DOSE 1400 MG/M2 OF GEMCITABINE PRIOR TO AE ONSET 19/JUN/2017?DOSE AS PER PROTOCOL
     Route: 042
     Dates: start: 20161213
  38. CARBOPLATIN. [Suspect]
     Active Substance: CARBOPLATIN
     Indication: TRANSITIONAL CELL CARCINOMA
     Dosage: DOSES TO ACHIEVE AREA UNDER THE CONCENTRATION-TIME CURVE (AUC) OF 4.5 MILLIGRAM PER MILLILITER INTO
     Route: 042
     Dates: start: 20161213
  39. METOCLOPRAMIDE. [Concomitant]
     Active Substance: METOCLOPRAMIDE
     Indication: NAUSEA
     Dosage: 7.68 MG BASE/2ML/AMP
     Route: 042
     Dates: start: 20170707, end: 20170714
  40. FAMOTIDINE. [Concomitant]
     Active Substance: FAMOTIDINE
     Indication: GASTRIC ULCER
  41. CEFADROXIL MONOHYDRATE [Concomitant]
     Active Substance: CEFADROXIL
     Indication: INFECTION
     Route: 048
     Dates: start: 20161205, end: 20161207

REACTIONS (7)
  - Platelet count decreased [Recovered/Resolved]
  - Blood bilirubin increased [Not Recovered/Not Resolved]
  - Blood creatinine increased [Recovered/Resolved]
  - White blood cell count decreased [Recovered/Resolved]
  - Sepsis [Not Recovered/Not Resolved]
  - Anaemia [Recovered/Resolved]
  - Hepatic failure [Fatal]

NARRATIVE: CASE EVENT DATE: 20161227
